FAERS Safety Report 6879919-8 (Version None)
Quarter: 2010Q3

REPORT INFORMATION
  Report Type: 
  Country: None (occurrence: None)
  Receive Date: 20100728
  Receipt Date: 20100719
  Transmission Date: 20110219
  Serious: Yes (Other)
  Sender: FDA-Public Use
  Company Number: CA-JNJFOC-20100706800

PATIENT
  Sex: Female
  Weight: 81.8 kg

DRUGS (7)
  1. REMICADE [Suspect]
     Indication: COLITIS ULCERATIVE
     Route: 042
     Dates: start: 20090301
  2. RANITIDINE [Concomitant]
  3. DOCUSATE SODIUM [Concomitant]
  4. ASPIRIN [Concomitant]
  5. TRAMADOL HCL [Concomitant]
  6. GRAVOL TAB [Concomitant]
  7. PREVACID [Concomitant]

REACTIONS (3)
  - ABDOMINAL PAIN [None]
  - MALAISE [None]
  - VOMITING [None]
